FAERS Safety Report 12228471 (Version 1)
Quarter: 2016Q1

REPORT INFORMATION
  Report Type: Spontaneous
  Country: IL (occurrence: None)
  Receive Date: 20160330
  Receipt Date: 20160330
  Transmission Date: 20160526
  Serious: Yes (Hospitalization)
  Sender: FDA-Public Use
  Company Number: None

PATIENT
  Sex: Female
  Weight: 82 kg

DRUGS (8)
  1. RIBAVIRIN 200 MG [Suspect]
     Active Substance: RIBAVIRIN
     Indication: CHRONIC HEPATITIS C
     Dosage: 3 PILL (6 PILLS TOTAL PER DAY)  EVERY DAY  QD
     Dates: start: 20160316, end: 20160321
  2. DISOTHIAZIDE [Concomitant]
  3. VIEKIRAX+EXVIERA DSV 250MG + PTV/R 75MG/50MG+OBV 12.5 MG ABBVIE LTD,UK [Suspect]
     Active Substance: DASABUVIR\OMBITASVIR\PARITAPREVIR\RITONAVIR
     Indication: CHRONIC HEPATITIS C
     Dosage: 1 PILL+ 2 PILLS  EVERY DAY ID + QD
     Dates: start: 20160316, end: 20160321
  4. OXOFURIN [Concomitant]
  5. DEPALEPT CHRONO [Concomitant]
     Active Substance: VALPROIC ACID
  6. NORMITEN [Concomitant]
     Active Substance: ATENOLOL
  7. EVITOL [Concomitant]
  8. TRIBEMIN [Concomitant]

REACTIONS (3)
  - Dyspnoea [None]
  - Oedema peripheral [None]
  - Bacterial infection [None]

NARRATIVE: CASE EVENT DATE: 20160321
